FAERS Safety Report 5273948-6 (Version None)
Quarter: 2007Q1

REPORT INFORMATION
  Report Type: 
  Country: None (occurrence: None)
  Receive Date: 20070323
  Receipt Date: 20070316
  Transmission Date: 20070707
  Serious: Yes (Death)
  Sender: FDA-Public Use
  Company Number: CA-ELI_LILLY_AND_COMPANY-CA200703002343

PATIENT
  Age: 71 Year
  Sex: Male
  Weight: 102 kg

DRUGS (8)
  1. XIGRIS [Suspect]
     Indication: SEPSIS
     Dosage: 24 UNK, UNK
     Route: 042
     Dates: start: 20070306
  2. MOXIFLOXACIN HCL [Concomitant]
     Dosage: 400 MG, OTHER
     Route: 042
     Dates: start: 20070306
  3. AZITHROMYCIN [Concomitant]
     Dosage: 500 MG, DAILY (1/D)
     Route: 042
     Dates: start: 20070306
  4. SOLU-CORTEF [Concomitant]
     Dosage: 50 MG, EVERY 6 HRS
     Route: 042
     Dates: start: 20070306
  5. PANTOPRAZOLE SODIUM [Concomitant]
     Dosage: 40 MG, 2/D
     Route: 042
     Dates: start: 20070306
  6. HEPARIN [Concomitant]
     Dosage: 5000 U, 2/D
     Route: 058
     Dates: start: 20070306
  7. NOREPINEPHRINE BITARTRATE [Concomitant]
     Route: 042
  8. VASOPRESSIN [Concomitant]
     Route: 042

REACTIONS (1)
  - SEPSIS [None]
